FAERS Safety Report 18329846 (Version 1)
Quarter: 2020Q3

REPORT INFORMATION
  Report Type: Spontaneous
  Country: AU (occurrence: AU)
  Receive Date: 20200930
  Receipt Date: 20200930
  Transmission Date: 20201103
  Serious: Yes (Other)
  Sender: FDA-Public Use
  Company Number: AU-TEVA-2020-AU-1834086

PATIENT
  Age: 46 Year

DRUGS (2)
  1. IMATINIB MESYLATE. [Suspect]
     Active Substance: IMATINIB MESYLATE
     Route: 065
     Dates: start: 201911
  2. IMATINIB MESYLATE. [Suspect]
     Active Substance: IMATINIB MESYLATE
     Route: 065
     Dates: end: 201905

REACTIONS (9)
  - Neutropenic sepsis [Unknown]
  - Coronary artery disease [Unknown]
  - Left ventricular hypertrophy [Unknown]
  - Ventricular hypokinesia [Unknown]
  - Drug resistance [Unknown]
  - Diastolic dysfunction [Unknown]
  - Pulmonary hypertension [Unknown]
  - Mitral valve incompetence [Unknown]
  - Tricuspid valve incompetence [Unknown]
